FAERS Safety Report 16865329 (Version 3)
Quarter: 2019Q4

REPORT INFORMATION
  Report Type: Spontaneous
  Country: PL (occurrence: PL)
  Receive Date: 20190930
  Receipt Date: 20191014
  Transmission Date: 20200122
  Serious: Yes (Hospitalization, Other)
  Sender: FDA-Public Use
  Company Number: PL-SA-2019SA264663

PATIENT
  Age: 34 Year
  Sex: Female

DRUGS (19)
  1. PROGESTERON [Concomitant]
     Active Substance: PROGESTERONE
     Dosage: MICRONIZED
     Route: 067
  2. TRIPTORELIN [Concomitant]
     Active Substance: TRIPTORELIN
     Indication: IN VITRO FERTILISATION
     Dosage: 0.1 MG, QD
  3. ENOXAPARIN SODIUM. [Suspect]
     Active Substance: ENOXAPARIN SODIUM
     Indication: ADJUVANT THERAPY
  4. L-THYROXIN [Interacting]
     Active Substance: LEVOTHYROXINE SODIUM
     Dosage: 37.5 UG, QD
  5. FOLIC ACID. [Concomitant]
     Active Substance: FOLIC ACID
     Indication: ADJUVANT THERAPY
     Dosage: UNK
  6. HYDROXYETHYL STARCH [Concomitant]
     Active Substance: HETASTARCH
     Indication: PRODUCT USED FOR UNKNOWN INDICATION
     Route: 065
  7. CABERGOLINE. [Concomitant]
     Active Substance: CABERGOLINE
     Dosage: 0.5 MG, DAILY
  8. ENOXAPARIN SODIUM. [Interacting]
     Active Substance: ENOXAPARIN SODIUM
     Indication: OVARIAN HYPERSTIMULATION SYNDROME
     Dosage: UNK
  9. L-THYROXIN [Interacting]
     Active Substance: LEVOTHYROXINE SODIUM
     Indication: HYPOTHYROIDISM
     Dosage: 50 UG, DAILY
  10. UROFOLLITROPIN [Concomitant]
     Active Substance: UROFOLLITROPIN
     Indication: IN VITRO FERTILISATION
     Dosage: 1075 IU, DAILY
  11. ALBUMIN [Concomitant]
     Active Substance: ALBUMIN HUMAN
     Route: 065
  12. PREDNISONE. [Interacting]
     Active Substance: PREDNISONE
     Indication: ADJUVANT THERAPY
  13. L-THYROXIN [Interacting]
     Active Substance: LEVOTHYROXINE SODIUM
     Dosage: 25 UG, QD
  14. CABERGOLINE. [Concomitant]
     Active Substance: CABERGOLINE
     Dosage: UNK
  15. ACETYLSALICYLIC ACID [Interacting]
     Active Substance: ASPIRIN
     Indication: OVARIAN HYPERSTIMULATION SYNDROME
     Dosage: UNK
  16. CABERGOLINE. [Concomitant]
     Active Substance: CABERGOLINE
     Dosage: 0.5 MG, QW
  17. IODINE. [Concomitant]
     Active Substance: IODINE
     Dosage: 200 MG, DAILY
  18. ACETYLSALICYLIC ACID [Interacting]
     Active Substance: ASPIRIN
     Indication: ADJUVANT THERAPY
  19. CHORIONIC GONADOTROPHIN [Concomitant]
     Active Substance: CHORIOGONADOTROPIN ALFA
     Indication: IN VITRO FERTILISATION
     Dosage: 125MCG PREPARATION

REACTIONS (6)
  - Hyperthyroidism [Recovered/Resolved]
  - Dyspnoea [Recovered/Resolved]
  - Palpitations [Recovered/Resolved]
  - Exposure during pregnancy [Unknown]
  - Drug interaction [Recovered/Resolved]
  - Tachycardia [Recovered/Resolved]
